FAERS Safety Report 5932953 (Version 5)
Quarter: 2020Q3

REPORT INFORMATION
  Report Type: Report from Study
  Country: US (occurrence: US)
  Receive Date: 20051130
  Receipt Date: 20120705
  Transmission Date: 20201104
  Serious: Yes (Other)
  Sender: FDA-Public Use
  Company Number: US-JNJFOC-20051106354

PATIENT
  Age: 1 Year
  Sex: Male
  Weight: 10.5 kg

DRUGS (6)
  1. CISAPRIDE [Suspect]
     Active Substance: CISAPRIDE
     Indication: GASTROOESOPHAGEAL REFLUX DISEASE
     Dosage: TOTAL DAILY DOSAGE
     Route: 048
     Dates: start: 20030903, end: 20040915
  2. CISAPRIDE [Suspect]
     Active Substance: CISAPRIDE
     Indication: GASTROINTESTINAL MOTILITY DISORDER
     Dosage: TOTAL DAILY DOSAGE
     Route: 048
     Dates: start: 20030903, end: 20040915
  3. ATROVENT [Concomitant]
     Active Substance: IPRATROPIUM BROMIDE
     Indication: WHEEZING
     Dates: start: 20040415, end: 20040422
  4. PRELONE [Concomitant]
     Active Substance: PREDNISOLONE
     Indication: WHEEZING
     Dates: start: 20040415, end: 20040422
  5. XOPENEX [Concomitant]
     Active Substance: LEVALBUTEROL HYDROCHLORIDE
     Indication: WHEEZING
     Dates: start: 20040415, end: 20040422
  6. TYLENOL [Concomitant]
     Active Substance: ACETAMINOPHEN
     Indication: PYREXIA
     Route: 048
     Dates: start: 20040415, end: 20040422

REACTIONS (1)
  - Electrocardiogram QT prolonged [Recovered/Resolved]

NARRATIVE: CASE EVENT DATE: 20040915
